FAERS Safety Report 18262607 (Version 1)
Quarter: 2020Q3

REPORT INFORMATION
  Report Type: Spontaneous
  Country: US (occurrence: US)
  Receive Date: 20200913
  Receipt Date: 20200913
  Transmission Date: 20201103
  Serious: No
  Sender: FDA-Public Use
  Company Number: None

PATIENT
  Age: 30 Year
  Sex: Female

DRUGS (1)
  1. REXALL ALCOHOL PREP [Suspect]
     Active Substance: ISOPROPYL ALCOHOL
     Indication: COVID-19 PROPHYLAXIS
     Dosage: ?          QUANTITY:100 ;?
     Dates: start: 20200909, end: 20200912

REACTIONS (5)
  - Pain of skin [None]
  - Skin fissures [None]
  - Product quality issue [None]
  - Product odour abnormal [None]
  - Dermatitis [None]

NARRATIVE: CASE EVENT DATE: 20200909
